FAERS Safety Report 12550242 (Version 1)
Quarter: 2016Q3

REPORT INFORMATION
  Report Type: Report from Study
  Country: JP (occurrence: JP)
  Receive Date: 20160712
  Receipt Date: 20160712
  Transmission Date: 20161109
  Serious: Yes (Death)
  Sender: FDA-Public Use
  Company Number: JP-EISAI MEDICAL RESEARCH-EC-2016-018506

PATIENT
  Age: 75 Year
  Sex: Female
  Weight: 41 kg

DRUGS (8)
  1. HALAVEN [Suspect]
     Active Substance: ERIBULIN MESYLATE
     Route: 041
     Dates: start: 20151203, end: 20160106
  2. DEPAS [Concomitant]
     Active Substance: ETIZOLAM
  3. HALAVEN [Suspect]
     Active Substance: ERIBULIN MESYLATE
     Indication: TUBULAR BREAST CARCINOMA
     Route: 041
     Dates: start: 20150424, end: 20150924
  4. HALAVEN [Suspect]
     Active Substance: ERIBULIN MESYLATE
     Route: 041
     Dates: start: 20151008, end: 20151008
  5. HALAVEN [Suspect]
     Active Substance: ERIBULIN MESYLATE
     Route: 041
     Dates: start: 20151022, end: 20151119
  6. RANMARK [Concomitant]
     Active Substance: DENOSUMAB
  7. FAMOTIDINE. [Concomitant]
     Active Substance: FAMOTIDINE
  8. MAGLAX [Concomitant]
     Active Substance: MAGNESIUM OXIDE

REACTIONS (2)
  - Malaise [Fatal]
  - Dyspnoea [Fatal]

NARRATIVE: CASE EVENT DATE: 20151207
